FAERS Safety Report 5661740-X (Version None)
Quarter: 2008Q1

REPORT INFORMATION
  Report Type: 
  Country: None (occurrence: None)
  Receive Date: 20080312
  Receipt Date: 20080310
  Transmission Date: 20080703
  Serious: Yes (Other)
  Sender: FDA-Public Use
  Company Number: D0056470A

PATIENT
  Age: 79 Year
  Sex: Male

DRUGS (4)
  1. AVANDIA [Suspect]
     Dosage: 8MG PER DAY
     Route: 048
     Dates: start: 20010101, end: 20080115
  2. GLIMEPIRIDE [Concomitant]
     Dosage: 3MG UNKNOWN
     Route: 048
  3. BISOPROLOL FUMARATE [Concomitant]
     Route: 048
  4. AMLODIPINE [Concomitant]
     Route: 048

REACTIONS (2)
  - DYSPNOEA EXERTIONAL [None]
  - VISUAL ACUITY REDUCED [None]
